FAERS Safety Report 7799201-4 (Version None)
Quarter: 2011Q4

REPORT INFORMATION
  Report Type: 
  Country: None (occurrence: None)
  Receive Date: 20111004
  Receipt Date: 20111004
  Transmission Date: 20120403
  Serious: Yes (Other)
  Sender: FDA-Public Use
  Company Number: None

PATIENT
  Sex: Female

DRUGS (1)
  1. LAMOTRIGINE [Suspect]
     Indication: BIPOLAR DISORDER
     Dosage: 200MG ONE QD PO
     Route: 048
     Dates: start: 20110601, end: 20110701

REACTIONS (5)
  - PRODUCT SUBSTITUTION ISSUE [None]
  - IRRITABILITY [None]
  - ANGER [None]
  - PATIENT ISOLATION [None]
  - DISSOCIATION [None]
